FAERS Safety Report 21188526 (Version 1)
Quarter: 2022Q3

REPORT INFORMATION
  Report Type: Spontaneous
  Country: US (occurrence: US)
  Receive Date: 20220809
  Receipt Date: 20220809
  Transmission Date: 20221027
  Serious: No
  Sender: FDA-Public Use
  Company Number: US-IGSA-BIG0017425

PATIENT
  Sex: Male
  Weight: 31.7 kg

DRUGS (1)
  1. GAMMAKED [Suspect]
     Active Substance: HUMAN IMMUNOGLOBULIN G
     Indication: Chronic inflammatory demyelinating polyradiculoneuropathy
     Dosage: UNK
     Route: 042
     Dates: start: 20211205, end: 20211206

REACTIONS (9)
  - Incorrect drug administration rate [Unknown]
  - Mood altered [Unknown]
  - Apraxia [Unknown]
  - Memory impairment [Unknown]
  - Balance disorder [Unknown]
  - Gait disturbance [Unknown]
  - Personality change [Unknown]
  - Dyscalculia [Unknown]
  - Psychotic disorder [Unknown]

NARRATIVE: CASE EVENT DATE: 20211205
